FAERS Safety Report 9734014 (Version 1)
Quarter: 2013Q4

REPORT INFORMATION
  Report Type: Spontaneous
  Country: RO (occurrence: RO)
  Receive Date: 20131205
  Receipt Date: 20131205
  Transmission Date: 20140711
  Serious: Yes (Other)
  Sender: FDA-Public Use
  Company Number: RO-WATSON-2013-22005

PATIENT
  Age: 40 Year
  Sex: Female

DRUGS (12)
  1. PREDNISONE (UNKNOWN) [Suspect]
     Indication: SYSTEMIC LUPUS ERYTHEMATOSUS
     Dosage: 10 MG, DAILY
     Route: 065
  2. PREDNISONE (UNKNOWN) [Suspect]
     Dosage: UNK
     Route: 065
     Dates: start: 1998
  3. METHYLPREDNISOLONE (UNKNOWN) [Suspect]
     Indication: SYSTEMIC LUPUS ERYTHEMATOSUS
     Dosage: MONTHLY PULSES FOR 6 MONTHS
     Route: 065
     Dates: start: 200801
  4. METHYLPREDNISOLONE (UNKNOWN) [Suspect]
     Dosage: PULSE THERAPY WITH 1 G/DAY FOR 3 DAYS
     Route: 017
     Dates: start: 2007
  5. HYDROXYCHLOROQUINE [Concomitant]
     Indication: SYSTEMIC LUPUS ERYTHEMATOSUS
     Dosage: UNK
     Route: 065
  6. AZATHIOPRINE [Concomitant]
     Indication: SYSTEMIC LUPUS ERYTHEMATOSUS
     Dosage: UNK
     Route: 065
  7. ISONIAZIDE [Concomitant]
     Indication: DISSEMINATED TUBERCULOSIS
     Dosage: UNK
     Route: 065
     Dates: start: 2007
  8. PYRAZINAMIDE [Concomitant]
     Indication: DISSEMINATED TUBERCULOSIS
     Dosage: UNK
     Route: 065
     Dates: start: 2007
  9. RIFAMPICIN [Concomitant]
     Indication: DISSEMINATED TUBERCULOSIS
     Dosage: UNK
     Route: 065
     Dates: start: 2007
  10. ETHAMBUTOL [Concomitant]
     Indication: DISSEMINATED TUBERCULOSIS
     Dosage: UNK
     Route: 065
     Dates: start: 2007
  11. CYCLOPHOSPHAMIDE [Concomitant]
     Indication: SYSTEMIC LUPUS ERYTHEMATOSUS
     Dosage: MONTHLY PULSE THERAPY, FOR 6 MONTHS
     Route: 065
     Dates: start: 200801
  12. CYCLOPHOSPHAMIDE [Concomitant]
     Indication: LUPUS NEPHRITIS

REACTIONS (3)
  - Cushingoid [Unknown]
  - Telangiectasia [Unknown]
  - Overweight [Unknown]
